FAERS Safety Report 18854780 (Version 2)
Quarter: 2021Q1

REPORT INFORMATION
  Report Type: Report from Study
  Country: DE (occurrence: DE)
  Receive Date: 20210205
  Receipt Date: 20210324
  Transmission Date: 20210420
  Serious: Yes (Hospitalization)
  Sender: FDA-Public Use
  Company Number: DE-WORLDWIDE CLINICAL TRIALS-2020-DE-000091

PATIENT
  Age: 66 Year
  Sex: Male
  Weight: 62 kg

DRUGS (11)
  1. PSYLLIUM HUSKS [Concomitant]
     Active Substance: PSYLLIUM HUSK
     Indication: CONSTIPATION
     Dosage: 1 TEASPOON QD
     Route: 048
     Dates: start: 20200508
  2. MAGNESIUM [Concomitant]
     Active Substance: MAGNESIUM
     Indication: MUSCLE SPASMS
     Dosage: UNK MILLIGRAM, QD
     Route: 048
     Dates: start: 20200507
  3. METAMIZOLE [Concomitant]
     Active Substance: METAMIZOLE
     Indication: TUMOUR PAIN
     Dosage: 5 X 30 DROPS, 5 PER DAY
     Route: 048
     Dates: start: 20200410
  4. TRAMADOL. [Concomitant]
     Active Substance: TRAMADOL
     Indication: PAIN
     Dosage: 5 X 3 DROPS
     Route: 048
     Dates: start: 20200428
  5. LEFAX [Concomitant]
     Active Substance: DIMETHICONE
     Indication: FLATULENCE
     Dosage: 1 TAB QD
     Route: 048
     Dates: start: 20200508
  6. HYDROMORPHONE [Concomitant]
     Active Substance: HYDROMORPHONE
     Indication: PAIN PROPHYLAXIS
     Dosage: 2 MILLIGRAM, QD
     Route: 048
     Dates: start: 20200506
  7. HALOPERIDOL. [Concomitant]
     Active Substance: HALOPERIDOL
     Indication: PRODUCT USED FOR UNKNOWN INDICATION
     Dosage: UNK MILLIGRAM, QD
     Route: 048
     Dates: start: 20200506, end: 20200506
  8. DCC?2618 [Suspect]
     Active Substance: RIPRETINIB
     Indication: GASTROINTESTINAL STROMAL TUMOUR
     Dosage: 150 MILLIGRAM, QD
     Dates: start: 20200506, end: 20200617
  9. MOVICOL [Concomitant]
     Active Substance: POLYETHYLENE GLYCOL 3350\POTASSIUM CHLORIDE\SODIUM BICARBONATE\SODIUM CHLORIDE
     Indication: CONSTIPATION
     Dosage: 1 BAG QD
     Route: 048
     Dates: start: 20200507
  10. GELOREVOICE [Concomitant]
     Indication: OROPHARYNGEAL PAIN
     Dosage: UNK MILLIGRAM, QD
     Route: 048
     Dates: start: 20200509
  11. RENNIE [CALCIUM CARBONATE;MAGNESIUM CARBONATE] [Concomitant]
     Active Substance: CALCIUM CARBONATE\MAGNESIUM CARBONATE
     Indication: PROPHYLAXIS
     Dosage: 1 DOSAGE FORM, QD
     Route: 048
     Dates: start: 20200507

REACTIONS (1)
  - Faecaloma [Recovered/Resolved]

NARRATIVE: CASE EVENT DATE: 20200523
